FAERS Safety Report 9171377 (Version 2)
Quarter: 2013Q2

REPORT INFORMATION
  Report Type: Spontaneous
  Country: JP (occurrence: JP)
  Receive Date: 20130319
  Receipt Date: 20130416
  Transmission Date: 20140414
  Serious: Yes (Hospitalization, Congenital Anomaly)
  Sender: FDA-Public Use
  Company Number: JP-ELI_LILLY_AND_COMPANY-JP201303003593

PATIENT
  Age: 0 Year
  Sex: 0

DRUGS (18)
  1. HUMALOG 50% LISPRO, 50% NPL [Suspect]
     Indication: TYPE 2 DIABETES MELLITUS
     Dosage: UNK
     Route: 064
     Dates: start: 201001, end: 20110111
  2. HUMALOG 50% LISPRO, 50% NPL [Suspect]
     Indication: TYPE 2 DIABETES MELLITUS
     Dosage: UNK
     Route: 064
     Dates: start: 201001, end: 20110111
  3. HUMALOG LISPRO [Suspect]
     Indication: TYPE 2 DIABETES MELLITUS
     Dosage: UNK
     Route: 064
     Dates: start: 20110111, end: 20110802
  4. HUMALOG LISPRO [Suspect]
     Indication: TYPE 2 DIABETES MELLITUS
     Dosage: UNK
     Route: 064
     Dates: start: 20110111, end: 20110802
  5. HUMALOG LISPRO [Suspect]
     Dosage: UNK
     Route: 063
     Dates: start: 20110802
  6. HUMALOG LISPRO [Suspect]
     Dosage: UNK
     Route: 063
     Dates: start: 20110802
  7. HUMALOG LISPRO - NPL [Suspect]
     Indication: TYPE 2 DIABETES MELLITUS
     Dosage: UNK
     Route: 064
     Dates: start: 20110111, end: 20110802
  8. HUMALOG LISPRO - NPL [Suspect]
     Indication: TYPE 2 DIABETES MELLITUS
     Dosage: UNK
     Route: 064
     Dates: start: 20110111, end: 20110802
  9. HUMALOG LISPRO - NPL [Suspect]
     Dosage: UNK
     Route: 063
     Dates: start: 20110802
  10. HUMALOG LISPRO - NPL [Suspect]
     Dosage: UNK
     Route: 063
     Dates: start: 20110802
  11. MELBIN [Concomitant]
     Indication: TYPE 2 DIABETES MELLITUS
     Dosage: UNK
     Route: 064
     Dates: end: 20110106
  12. MELBIN [Concomitant]
     Indication: TYPE 2 DIABETES MELLITUS
     Dosage: UNK
     Route: 064
     Dates: end: 20110106
  13. ACTOS [Concomitant]
     Indication: TYPE 2 DIABETES MELLITUS
     Dosage: UNK
     Route: 064
     Dates: end: 20110106
  14. ACTOS [Concomitant]
     Indication: TYPE 2 DIABETES MELLITUS
     Dosage: UNK
     Route: 064
     Dates: end: 20110106
  15. AMARYL [Concomitant]
     Indication: TYPE 2 DIABETES MELLITUS
     Dosage: UNK
     Route: 064
     Dates: end: 20110106
  16. AMARYL [Concomitant]
     Indication: TYPE 2 DIABETES MELLITUS
     Dosage: UNK
     Route: 064
     Dates: end: 20110106
  17. KENACORT [Concomitant]
     Indication: DIABETIC RETINOPATHY
     Dosage: UNK
     Route: 064
     Dates: start: 201105
  18. KENACORT [Concomitant]
     Indication: DIABETIC RETINOPATHY
     Dosage: UNK
     Route: 064
     Dates: start: 201105

REACTIONS (4)
  - Cryptorchism [Recovered/Resolved]
  - Hypoglycaemia neonatal [Recovered/Resolved]
  - Foetal exposure during pregnancy [Recovered/Resolved]
  - Exposure during breast feeding [Not Recovered/Not Resolved]
